FAERS Safety Report 23682370 (Version 1)
Quarter: 2024Q1

REPORT INFORMATION
  Report Type: Spontaneous
  Country: US (occurrence: US)
  Receive Date: 20240328
  Receipt Date: 20240328
  Transmission Date: 20240410
  Serious: No
  Sender: FDA-Public Use
  Company Number: US-Calliditas-2024CAL00492

PATIENT
  Age: 70 Year
  Sex: Male

DRUGS (1)
  1. TARPEYO [Suspect]
     Active Substance: BUDESONIDE
     Indication: Haematuria
     Dosage: 16MG (4MG CAPSULES) ONCE DAILY
     Route: 048
     Dates: start: 20240112

REACTIONS (6)
  - Tooth disorder [Unknown]
  - Headache [Unknown]
  - Pyrexia [Unknown]
  - Hypertension [Unknown]
  - Ocular hyperaemia [Unknown]
  - Off label use [Unknown]
